FAERS Safety Report 5553642-4 (Version None)
Quarter: 2007Q4

REPORT INFORMATION
  Report Type: 
  Country: None (occurrence: None)
  Receive Date: 20071213
  Receipt Date: 20071205
  Transmission Date: 20080405
  Serious: Yes (Other)
  Sender: FDA-Public Use
  Company Number: PHBS2006JP17405

PATIENT
  Age: 62 Year
  Sex: Female

DRUGS (5)
  1. LAMISIL [Suspect]
     Route: 048
  2. NORVASC [Concomitant]
  3. ASPIRIN [Concomitant]
  4. MEVALOTIN [Concomitant]
  5. NEUQUINON [Concomitant]

REACTIONS (1)
  - BLOOD PRESSURE INCREASED [None]
